FAERS Safety Report 8811280 (Version 1)
Quarter: 2012Q4

REPORT INFORMATION
  Report Type: 
  Country: US (occurrence: None)
  Receive Date: 20120924
  Receipt Date: 20120924
  Transmission Date: 20130627
  Serious: Yes (Hospitalization)
  Sender: FDA-Public Use
  Company Number: None

PATIENT
  Sex: Male
  Weight: 114 kg

DRUGS (2)
  1. CISPLATIN [Suspect]
     Dates: start: 20110214
  2. ETOPOSIDE [Suspect]
     Dates: start: 20110216

REACTIONS (7)
  - Productive cough [None]
  - Chest pain [None]
  - Hypotension [None]
  - Hypoxia [None]
  - Pancytopenia [None]
  - Renal failure [None]
  - Sepsis [None]
